FAERS Safety Report 7830981-5 (Version None)
Quarter: 2011Q4

REPORT INFORMATION
  Report Type: 
  Country: None (occurrence: None)
  Receive Date: 20111021
  Receipt Date: 20111014
  Transmission Date: 20120403
  Serious: Yes (Congenital Anomaly, Other)
  Sender: FDA-Public Use
  Company Number: US-CEPHALON-2011005403

PATIENT
  Sex: Female

DRUGS (3)
  1. VITAFOL [Concomitant]
  2. NUVIGIL [Suspect]
     Route: 064
  3. NITROFURAN [Concomitant]

REACTIONS (1)
  - CONGENITAL GENITOURINARY ABNORMALITY [None]
